FAERS Safety Report 6931638-5 (Version None)
Quarter: 2010Q3

REPORT INFORMATION
  Report Type: 
  Country: None (occurrence: None)
  Receive Date: 20100812
  Receipt Date: 20090701
  Transmission Date: 20110219
  Serious: No
  Sender: FDA-Public Use
  Company Number: 2009-00264

PATIENT
  Age: 40 Year
  Sex: Male
  Weight: 86.1834 kg

DRUGS (3)
  1. ZICAM NASAL PRODUCTS [Suspect]
     Indication: NASOPHARYNGITIS
     Dosage: 2-3 DOSES
     Dates: start: 20090401
  2. ANTIBIOTICS [Concomitant]
  3. LIPITOR [Concomitant]

REACTIONS (2)
  - AGEUSIA [None]
  - ANOSMIA [None]
